FAERS Safety Report 7390690-6 (Version None)
Quarter: 2011Q2

REPORT INFORMATION
  Report Type: 
  Country: None (occurrence: None)
  Receive Date: 20110404
  Receipt Date: 20110328
  Transmission Date: 20111010
  Serious: No
  Sender: FDA-Public Use
  Company Number: US-BIOGENIDEC-2011BI008395

PATIENT
  Age: 40 Year
  Sex: Female

DRUGS (3)
  1. TYSABRI [Suspect]
     Route: 042
     Dates: start: 20080922, end: 20091117
  2. TYSABRI [Suspect]
     Indication: MULTIPLE SCLEROSIS
     Route: 042
     Dates: start: 20100512
  3. ADDERALL 10 [Concomitant]
     Indication: FATIGUE
     Dates: start: 20030101

REACTIONS (10)
  - COGNITIVE DISORDER [None]
  - HYPOAESTHESIA [None]
  - VISUAL ACUITY REDUCED [None]
  - FATIGUE [None]
  - PNEUMONIA [None]
  - VERTIGO [None]
  - BALANCE DISORDER [None]
  - MUSCULAR WEAKNESS [None]
  - VISION BLURRED [None]
  - PARAESTHESIA [None]
